FAERS Safety Report 13171734 (Version 4)
Quarter: 2017Q3

REPORT INFORMATION
  Report Type: Report from Study
  Country: US (occurrence: US)
  Receive Date: 20170131
  Receipt Date: 20170706
  Transmission Date: 20171127
  Serious: Yes (Hospitalization)
  Sender: FDA-Public Use
  Company Number: US-BAYER-2017-015466

PATIENT
  Age: 56 Year
  Sex: Female

DRUGS (3)
  1. NEXAVAR [Suspect]
     Active Substance: SORAFENIB
     Indication: HEPATIC CIRRHOSIS
     Dosage: 200 MG, BID (1 IN THE MORNING AND 1 IN THE EVENING)
     Dates: end: 20170329
  2. NEXAVAR [Suspect]
     Active Substance: SORAFENIB
     Indication: HEPATIC CIRRHOSIS
     Dosage: 200 MG, BID
     Route: 048
     Dates: start: 20170413, end: 20170601
  3. NEXAVAR [Suspect]
     Active Substance: SORAFENIB
     Indication: HEPATIC CIRRHOSIS
     Dosage: 400 MG, BID
     Route: 048
     Dates: start: 20161207

REACTIONS (4)
  - Hospitalisation [None]
  - Product use in unapproved indication [None]
  - Off label use [None]
  - Syncope [Unknown]
